FAERS Safety Report 10030710 (Version 1)
Quarter: 2014Q1

REPORT INFORMATION
  Report Type: Spontaneous
  Country: US (occurrence: US)
  Receive Date: 20140323
  Receipt Date: 20140323
  Transmission Date: 20141002
  Serious: No
  Sender: FDA-Public Use
  Company Number: US-ALLERGAN-1400976US

PATIENT
  Age: 34 Year
  Sex: Female

DRUGS (1)
  1. LATISSE 0.03% [Suspect]
     Indication: HYPOTRICHOSIS
     Dosage: SPARINGLY EVERY OTHER NIGHT ON AND OFF
     Dates: start: 2012, end: 201312

REACTIONS (2)
  - Diplopia [Not Recovered/Not Resolved]
  - Inappropriate schedule of drug administration [Unknown]
